FAERS Safety Report 6908295-7 (Version None)
Quarter: 2010Q3

REPORT INFORMATION
  Report Type: 
  Country: None (occurrence: None)
  Receive Date: 20100716
  Receipt Date: 20100209
  Transmission Date: 20110219
  Serious: Yes (Other)
  Sender: FDA-Public Use
  Company Number: 2010017658

PATIENT
  Age: 40 Year
  Sex: Female
  Weight: 79.8 kg

DRUGS (2)
  1. CELEBREX [Suspect]
     Indication: NECK PAIN
     Dosage: 200 MG, 1X/DAY, ORAL
     Route: 048
     Dates: start: 20100122, end: 20100208
  2. CELEBREX [Suspect]
     Indication: PAIN IN EXTREMITY
     Dosage: 200 MG, 1X/DAY, ORAL
     Route: 048
     Dates: start: 20100122, end: 20100208

REACTIONS (4)
  - DIZZINESS [None]
  - HYPERSENSITIVITY [None]
  - POLLAKIURIA [None]
  - SNEEZING [None]
